FAERS Safety Report 6645077-8 (Version None)
Quarter: 2010Q1

REPORT INFORMATION
  Report Type: 
  Country: None (occurrence: None)
  Receive Date: 20100319
  Receipt Date: 20100319
  Transmission Date: 20100710
  Serious: Yes (Hospitalization)
  Sender: FDA-Public Use
  Company Number: None

PATIENT
  Age: 86 Year
  Sex: Female
  Weight: 88 kg

DRUGS (14)
  1. LEVOFLOXACIN [Suspect]
     Indication: URINARY TRACT INFECTION
     Dosage: 250 MG Q24HRS PO
     Route: 048
     Dates: start: 20100306, end: 20100307
  2. LIPITOR [Concomitant]
  3. PLAVIC [Concomitant]
  4. COREG [Concomitant]
  5. ASPIRIN [Concomitant]
  6. KLOR-CON [Concomitant]
  7. SYNTHROID [Concomitant]
  8. XANAX [Concomitant]
  9. MULTI-VITAMIN [Concomitant]
  10. CALCIUM [Concomitant]
  11. LASIX [Concomitant]
  12. PROPOXYPHENE NAPSYLATE [Concomitant]
  13. PROBENECID [Concomitant]
  14. DCN-100 [Concomitant]

REACTIONS (2)
  - OEDEMA [None]
  - SWOLLEN TONGUE [None]
